FAERS Safety Report 8501931-3 (Version None)
Quarter: 2012Q3

REPORT INFORMATION
  Report Type: 
  Country: None (occurrence: None)
  Receive Date: 20120711
  Receipt Date: 20120612
  Transmission Date: 20120928
  Serious: Yes (Hospitalization)
  Sender: FDA-Public Use
  Company Number: ES-JNJFOC-20090504594

PATIENT
  Age: 40 Year
  Sex: Male
  Weight: 77 kg

DRUGS (5)
  1. REMICADE [Suspect]
     Route: 042
     Dates: start: 20090129
  2. REMICADE [Suspect]
     Route: 042
     Dates: start: 20081126
  3. CORTICOSTEROIDS [Concomitant]
     Route: 048
  4. IMURAN [Concomitant]
     Route: 048
     Dates: end: 20090106
  5. REMICADE [Suspect]
     Indication: COLITIS ULCERATIVE
     Route: 042
     Dates: start: 20081001

REACTIONS (1)
  - PNEUMONIA [None]
